FAERS Safety Report 17582151 (Version 2)
Quarter: 2020Q4

REPORT INFORMATION
  Report Type: Report from Study
  Country: DE (occurrence: DE)
  Receive Date: 20200325
  Receipt Date: 20201009
  Transmission Date: 20210113
  Serious: Yes (Other)
  Sender: FDA-Public Use
  Company Number: DE-MYLANLABS-2019M1037771

PATIENT
  Sex: Female
  Weight: 120 kg

DRUGS (10)
  1. KISQALI [Suspect]
     Active Substance: RIBOCICLIB
     Dosage: 600 MG, QD (21 DAYS)
     Route: 048
     Dates: start: 20180821, end: 20180910
  2. KISQALI [Suspect]
     Active Substance: RIBOCICLIB
     Dosage: 600 MILLIGRAM, QD,  (21 DAYS, 7 DAYS OF PAUSE)
     Route: 048
     Dates: start: 20190213, end: 20190214
  3. ANASTROZOLE. [Suspect]
     Active Substance: ANASTROZOLE
     Indication: BREAST CANCER METASTATIC
     Dosage: 1 MG, QD (21 DAYS)
     Route: 048
     Dates: start: 20180721
  4. KISQALI [Suspect]
     Active Substance: RIBOCICLIB
     Dosage: 600 MG, QD (21 DAYS)
     Route: 048
     Dates: start: 20181016, end: 20181105
  5. KISQALI [Suspect]
     Active Substance: RIBOCICLIB
     Dosage: 400 MILLIGRAM, QD
     Route: 048
     Dates: start: 20190215
  6. KISQALI [Suspect]
     Active Substance: RIBOCICLIB
     Dosage: 600 MG, QD (21 DAYS)
     Route: 048
     Dates: start: 20180918, end: 20181005
  7. KISQALI [Suspect]
     Active Substance: RIBOCICLIB
     Dosage: 600 MG, QD (21 DAYS)
     Route: 048
     Dates: start: 20181113, end: 20181203
  8. KISQALI [Suspect]
     Active Substance: RIBOCICLIB
     Dosage: 600 MILLIGRAM, QD,(21 DAYS, 7 DAYS OF PAUSE)
     Route: 048
     Dates: start: 20190123, end: 20190205
  9. KISQALI [Suspect]
     Active Substance: RIBOCICLIB
     Indication: BREAST CANCER METASTATIC
     Dosage: 600 MG, QD (21 DAYS)
     Route: 048
     Dates: start: 20180724, end: 20180813
  10. KISQALI [Suspect]
     Active Substance: RIBOCICLIB
     Dosage: 600 MILLIGRAM, QD, (21 DAYS, 7 DAYS OF PAUSE)
     Route: 048
     Dates: start: 20181219, end: 20190115

REACTIONS (7)
  - Weight decreased [Unknown]
  - Anaemia [Not Recovered/Not Resolved]
  - Neutropenia [Recovering/Resolving]
  - Hypertension [Not Recovered/Not Resolved]
  - Herpes zoster [Recovering/Resolving]
  - Pain [Unknown]
  - Leukopenia [Recovered/Resolved]

NARRATIVE: CASE EVENT DATE: 20181002
